FAERS Safety Report 21887424 (Version 1)
Quarter: 2023Q1

REPORT INFORMATION
  Report Type: Report from Study
  Country: CO (occurrence: CO)
  Receive Date: 20230120
  Receipt Date: 20230120
  Transmission Date: 20230418
  Serious: Yes (Hospitalization)
  Sender: FDA-Public Use
  Company Number: CO-ABBVIE-4276898

PATIENT
  Age: 13 Year
  Sex: Male
  Weight: 51 kg

DRUGS (1)
  1. HUMIRA [Suspect]
     Active Substance: ADALIMUMAB
     Indication: Psoriasis
     Route: 058
     Dates: start: 20210601, end: 20221116

REACTIONS (2)
  - Liver disorder [Recovering/Resolving]
  - Leptospirosis [Recovering/Resolving]

NARRATIVE: CASE EVENT DATE: 20221201
